FAERS Safety Report 16132206 (Version 1)
Quarter: 2019Q1

REPORT INFORMATION
  Report Type: Spontaneous
  Country: US (occurrence: US)
  Receive Date: 20190329
  Receipt Date: 20190329
  Transmission Date: 20190418
  Serious: Yes (Hospitalization, Other)
  Sender: FDA-Public Use
  Company Number: US-VELOXIS PHARMACEUTICALS, INC.-2019VELUS1454

PATIENT
  Age: 52 Year
  Sex: Male
  Weight: 63 kg

DRUGS (6)
  1. ENVARSUS XR [Suspect]
     Active Substance: TACROLIMUS
     Indication: LIVER TRANSPLANT
     Dosage: 2 MG, BID
     Route: 065
  2. MEPIVACAINE [Concomitant]
     Active Substance: MEPIVACAINE\MEPIVACAINE HYDROCHLORIDE
     Indication: PRODUCT USED FOR UNKNOWN INDICATION
     Dosage: 20 ML, UNK
     Route: 042
  3. GABAPENTIN. [Concomitant]
     Active Substance: GABAPENTIN
     Indication: NEUROPATHY PERIPHERAL
  4. MIDAZOLAM [Concomitant]
     Active Substance: MIDAZOLAM HYDROCHLORIDE
     Indication: SEDATIVE THERAPY
     Dosage: 2 MG, UNK
     Route: 042
  5. OXYCONTIN [Concomitant]
     Active Substance: OXYCODONE HYDROCHLORIDE
     Indication: PAIN
     Dosage: 30 MG, BID
  6. OXYCODONE [Concomitant]
     Active Substance: OXYCODONE
     Indication: PAIN
     Dosage: 10 MG, QID

REACTIONS (8)
  - Acute kidney injury [Unknown]
  - Artery dissection [Recovered/Resolved]
  - Malignant hypertension [Unknown]
  - Glomerulonephritis rapidly progressive [Unknown]
  - Intentional product misuse [Unknown]
  - Arterial occlusive disease [Recovered/Resolved]
  - Venous stenosis [Unknown]
  - Intentional product use issue [Unknown]
